FAERS Safety Report 14622222 (Version 1)
Quarter: 2018Q1

REPORT INFORMATION
  Report Type: Spontaneous
  Country: US (occurrence: US)
  Receive Date: 20180311
  Receipt Date: 20180311
  Transmission Date: 20180509
  Serious: No
  Sender: FDA-Public Use
  Company Number: US-JNJFOC-20180231423

PATIENT
  Age: 54 Year
  Sex: Female
  Weight: 72.58 kg

DRUGS (8)
  1. VIT B 12 [Concomitant]
     Indication: VITAMIN B12 DEFICIENCY
     Route: 058
  2. CLONAZEPAM. [Concomitant]
     Active Substance: CLONAZEPAM
     Indication: ANXIETY
     Dosage: AS NEEDED
     Route: 065
     Dates: start: 1998
  3. AEROSPAN [Concomitant]
     Active Substance: FLUNISOLIDE
     Indication: CHRONIC OBSTRUCTIVE PULMONARY DISEASE
     Route: 055
     Dates: start: 201712
  4. STELARA [Suspect]
     Active Substance: USTEKINUMAB
     Indication: CROHN^S DISEASE
     Route: 042
     Dates: start: 20180201
  5. PROZAC [Concomitant]
     Active Substance: FLUOXETINE HYDROCHLORIDE
     Indication: DEPRESSION
     Route: 065
  6. BEVESPI AEROSPHERE [Concomitant]
     Active Substance: FORMOTEROL FUMARATE\GLYCOPYRROLATE
     Indication: CHRONIC OBSTRUCTIVE PULMONARY DISEASE
     Dosage: 2 PUFFS DAILY
     Route: 055
     Dates: start: 201712
  7. OMEPRAZOLE. [Concomitant]
     Active Substance: OMEPRAZOLE
     Indication: DYSPEPSIA
     Route: 065
  8. VITAMIN D [Concomitant]
     Active Substance: CHOLECALCIFEROL
     Indication: VITAMIN D DEFICIENCY
     Dosage: 4000.0 CC
     Route: 065

REACTIONS (9)
  - Hypertension [Not Recovered/Not Resolved]
  - Swollen tongue [Recovering/Resolving]
  - Pruritus generalised [Not Recovered/Not Resolved]
  - Headache [Not Recovered/Not Resolved]
  - Back pain [Recovered/Resolved]
  - Oral candidiasis [Not Recovered/Not Resolved]
  - Weight increased [Not Recovered/Not Resolved]
  - Vulvovaginal mycotic infection [Recovering/Resolving]
  - Fatigue [Recovering/Resolving]

NARRATIVE: CASE EVENT DATE: 201802
